FAERS Safety Report 6698203-9 (Version None)
Quarter: 2010Q2

REPORT INFORMATION
  Report Type: 
  Country: None (occurrence: None)
  Receive Date: 20100427
  Receipt Date: 20100413
  Transmission Date: 20101027
  Serious: Yes (Life-Threatening, Other)
  Sender: FDA-Public Use
  Company Number: US-MYLANLABS-2010S1006620

PATIENT
  Age: 27 Year
  Sex: Female

DRUGS (2)
  1. TRAMADOL HYDROCHLORIDE [Suspect]
     Route: 048
     Dates: start: 20100412, end: 20100412
  2. DEPO PROVERA /00115201/ [Concomitant]
     Indication: CONTRACEPTION
     Route: 030

REACTIONS (2)
  - OVERDOSE [None]
  - SUICIDE ATTEMPT [None]
